FAERS Safety Report 5427413-3 (Version None)
Quarter: 2007Q3

REPORT INFORMATION
  Report Type: 
  Country: None (occurrence: None)
  Receive Date: 20070828
  Receipt Date: 20070813
  Transmission Date: 20080115
  Serious: Yes (Other)
  Sender: FDA-Public Use
  Company Number: BR-ELI_LILLY_AND_COMPANY-BR200708004772

PATIENT
  Age: 72 Year
  Sex: Female

DRUGS (4)
  1. FORTEO [Suspect]
     Indication: OSTEOPOROSIS
     Dosage: UNK, DAILY (1/D)
     Route: 058
  2. DIOVAN [Concomitant]
     Indication: CARDIAC DISORDER
     Dosage: 80 MG, 2/D
     Route: 048
  3. FRONTAL [Concomitant]
     Dosage: UNK, DAILY (1/D)
     Route: 048
  4. PAMELOR [Concomitant]
     Indication: STRESS
     Dosage: 10 MG, UNKNOWN
     Route: 048

REACTIONS (3)
  - FALL [None]
  - RIB FRACTURE [None]
  - SPINAL FRACTURE [None]
